FAERS Safety Report 22967890 (Version 2)
Quarter: 2024Q2

REPORT INFORMATION
  Report Type: Spontaneous
  Country: GB (occurrence: GB)
  Receive Date: 20230921
  Receipt Date: 20240523
  Transmission Date: 20240715
  Serious: Yes (Hospitalization)
  Sender: FDA-Public Use
  Company Number: GB-BAUSCH-BL-2023-014054

PATIENT
  Sex: Male

DRUGS (1)
  1. PLENVU [Suspect]
     Active Substance: ASCORBIC ACID\POLYETHYLENE GLYCOL 3350\POTASSIUM CHLORIDE\SODIUM ASCORBATE\SODIUM CHLORIDE\SODIUM SU
     Indication: Bowel preparation
     Dosage: 3 DOSAGE FORM (DOSE 1 AND DOSE 2 TWICE)
     Route: 065

REACTIONS (3)
  - Dehydration [Recovered/Resolved]
  - Overdose [Unknown]
  - Off label use [Unknown]
